FAERS Safety Report 9345519 (Version 3)
Quarter: 2013Q4

REPORT INFORMATION
  Report Type: Spontaneous
  Country: IE (occurrence: IE)
  Receive Date: 20130613
  Receipt Date: 20131007
  Transmission Date: 20140711
  Serious: Yes (Life-Threatening, Other)
  Sender: FDA-Public Use
  Company Number: IE-JNJFOC-20121113075

PATIENT
  Age: 30 Year
  Sex: Male
  Weight: 75 kg

DRUGS (4)
  1. REMICADE [Suspect]
     Indication: ANKYLOSING SPONDYLITIS
     Dosage: 15TH INFUSION (STRENGTH: 5MG/KG)
     Route: 042
     Dates: start: 20121120, end: 20121120
  2. REMICADE [Suspect]
     Indication: ANKYLOSING SPONDYLITIS
     Route: 042
  3. REMICADE [Suspect]
     Indication: CROHN^S DISEASE
     Dosage: 15TH INFUSION (STRENGTH: 5MG/KG)
     Route: 042
     Dates: start: 20121120, end: 20121120
  4. REMICADE [Suspect]
     Indication: CROHN^S DISEASE
     Route: 042

REACTIONS (6)
  - Back pain [Recovered/Resolved]
  - Heart rate increased [Recovering/Resolving]
  - Abscess [Unknown]
  - Infusion related reaction [Recovering/Resolving]
  - Feeling cold [Recovering/Resolving]
  - Fatigue [Unknown]
